FAERS Safety Report 24893532 (Version 2)
Quarter: 2025Q1

REPORT INFORMATION
  Report Type: Spontaneous
  Country: JP (occurrence: JP)
  Receive Date: 20250128
  Receipt Date: 20250212
  Transmission Date: 20250409
  Serious: Yes (Death, Other)
  Sender: GILEAD
  Company Number: JP-GILEAD-2025-0699209

PATIENT
  Age: 93 Year
  Sex: Male

DRUGS (1)
  1. VEKLURY [Suspect]
     Active Substance: REMDESIVIR
     Indication: COVID-19
     Route: 041
     Dates: start: 20241231, end: 20250102

REACTIONS (2)
  - Death [Fatal]
  - Haematuria [Unknown]

NARRATIVE: CASE EVENT DATE: 20241231
